FAERS Safety Report 8553757-2 (Version None)
Quarter: 2012Q3

REPORT INFORMATION
  Report Type: 
  Country: None (occurrence: None)
  Receive Date: 20120731
  Receipt Date: 20120723
  Transmission Date: 20120928
  Serious: Yes (Hospitalization)
  Sender: FDA-Public Use
  Company Number: US-GLAXOSMITHKLINE-A0987579A

PATIENT
  Age: 58 Year
  Sex: Male
  Weight: 90.9 kg

DRUGS (6)
  1. LIPITOR [Suspect]
     Dosage: 80MG PER DAY
     Route: 065
     Dates: start: 20070101
  2. LISINOPRIL [Suspect]
     Indication: BLOOD PRESSURE
     Dosage: 10MG PER DAY
     Route: 065
  3. PLAVIX [Suspect]
     Indication: ARTERIAL STENOSIS
     Dosage: 75MG PER DAY
     Route: 065
  4. COREG [Suspect]
     Indication: PRODUCT USED FOR UNKNOWN INDICATION
     Dosage: 40MG PER DAY
     Route: 065
  5. GLUCOTROL XL [Suspect]
     Indication: DIABETES MELLITUS
     Dosage: 30MG UNKNOWN
     Route: 065
  6. ASPIRIN [Suspect]
     Indication: CARDIOVASCULAR EVENT PROPHYLAXIS
     Dosage: 81MG PER DAY
     Route: 065

REACTIONS (3)
  - CORONARY ARTERY STENOSIS [None]
  - CORONARY ARTERIAL STENT INSERTION [None]
  - CHEST PAIN [None]
